FAERS Safety Report 7279539-X (Version None)
Quarter: 2011Q1

REPORT INFORMATION
  Report Type: 
  Country: None (occurrence: None)
  Receive Date: 20110208
  Receipt Date: 20110126
  Transmission Date: 20110831
  Serious: No
  Sender: FDA-Public Use
  Company Number: US-BIOGENIDEC-2011BI003999

PATIENT
  Sex: Female

DRUGS (2)
  1. TYSABRI [Suspect]
     Indication: MULTIPLE SCLEROSIS
     Route: 042
     Dates: start: 20100226, end: 20101001
  2. TYSABRI [Suspect]
     Route: 042
     Dates: start: 20080625, end: 20081223

REACTIONS (1)
  - EXPOSURE TO COMMUNICABLE DISEASE [None]
